FAERS Safety Report 25795948 (Version 2)
Quarter: 2025Q3

REPORT INFORMATION
  Report Type: Spontaneous
  Country: US (occurrence: US)
  Receive Date: 20250912
  Receipt Date: 20250923
  Transmission Date: 20251021
  Serious: Yes (Hospitalization)
  Sender: BAYER HEALTHCARE PHARMACEUTICALS INC.
  Company Number: US-BAYER-2025A119734

PATIENT
  Age: 34 Year
  Sex: Female
  Weight: 118.37 kg

DRUGS (2)
  1. GADAVIST [Suspect]
     Active Substance: GADOBUTROL
     Indication: Multiple sclerosis
     Dates: start: 20250908, end: 20250908
  2. GADAVIST [Suspect]
     Active Substance: GADOBUTROL
     Indication: Magnetic resonance imaging

REACTIONS (4)
  - Urticaria [None]
  - Pruritus [None]
  - Headache [None]
  - Vomiting [Recovered/Resolved]

NARRATIVE: CASE EVENT DATE: 20250909
